FAERS Safety Report 4607692-2 (Version None)
Quarter: 2005Q1

REPORT INFORMATION
  Report Type: 
  Country: None (occurrence: None)
  Receive Date: 20050309
  Receipt Date: 20050217
  Transmission Date: 20050727
  Serious: Yes (Death, Hospitalization)
  Sender: FDA-Public Use
  Company Number: FR_050205871

PATIENT
  Age: 72 Year
  Sex: Male

DRUGS (3)
  1. ALIMTA [Suspect]
     Indication: METASTATIC NEOPLASM
     Dosage: 500 MG/M2/1 OTHER
     Route: 050
     Dates: start: 20050204
  2. FOLIC ACID [Concomitant]
  3. VITAMIN B-12 [Concomitant]

REACTIONS (7)
  - ASTHENIA [None]
  - BONE MARROW DEPRESSION [None]
  - COLITIS ISCHAEMIC [None]
  - NECROTISING COLITIS [None]
  - RECTAL HAEMORRHAGE [None]
  - RENAL FAILURE [None]
  - VOMITING [None]
